FAERS Safety Report 6198932-X (Version None)
Quarter: 2009Q2

REPORT INFORMATION
  Report Type: 
  Country: None (occurrence: None)
  Receive Date: 20090522
  Receipt Date: 20090514
  Transmission Date: 20091009
  Serious: Yes (Death, Disabling)
  Sender: FDA-Public Use
  Company Number: FR-ELI_LILLY_AND_COMPANY-FR200905002655

PATIENT
  Sex: Female

DRUGS (7)
  1. HUMALOG [Suspect]
     Indication: DIABETES MELLITUS
     Route: 058
     Dates: start: 20080715
  2. ALKERAN [Concomitant]
     Indication: LEUKAEMIA PLASMACYTIC
     Dosage: 10 MG, DAILY (1/D)
     Route: 048
     Dates: start: 20080716
  3. CORTANCYL [Concomitant]
     Indication: LEUKAEMIA PLASMACYTIC
     Dosage: 40 MG, DAILY (1/D)
     Route: 048
     Dates: start: 20080716
  4. THALIDOMIDE [Concomitant]
     Indication: LEUKAEMIA PLASMACYTIC
     Dosage: 100 MG, DAILY (1/D)
     Dates: start: 20080716, end: 20081010
  5. ZOMETA [Concomitant]
     Indication: METASTASIS
     Dates: start: 20080901, end: 20080901
  6. NEORECORMON [Concomitant]
     Indication: ANAEMIA
     Dosage: 60000 IU, WEEKLY (1/W)
     Dates: start: 20080701, end: 20081010
  7. ZYLORIC [Concomitant]
     Indication: HYPERURICAEMIA
     Dosage: 300 MG, DAILY (1/D)
     Route: 048
     Dates: start: 20080701

REACTIONS (3)
  - MULTIPLE MYELOMA [None]
  - RETINAL ARTERY THROMBOSIS [None]
  - VISUAL ACUITY REDUCED [None]
